FAERS Safety Report 18549410 (Version 1)
Quarter: 2020Q4

REPORT INFORMATION
  Report Type: Spontaneous
  Country: US (occurrence: US)
  Receive Date: 20201126
  Receipt Date: 20201126
  Transmission Date: 20210114
  Serious: No
  Sender: FDA-Public Use
  Company Number: US-EMD SERONO-9199347

PATIENT
  Age: 30 Year
  Sex: Female

DRUGS (1)
  1. MAVENCLAD [Suspect]
     Active Substance: CLADRIBINE
     Indication: MULTIPLE SCLEROSIS
     Dosage: FIRST YEAR FIRST CYCLE THERAPY: FROM AN UNKNOWN DATE IN 2020 TO AN UNKNOWN DATE IN 2020.

REACTIONS (1)
  - Multiple sclerosis [Unknown]
